FAERS Safety Report 8071609-1 (Version None)
Quarter: 2012Q1

REPORT INFORMATION
  Report Type: 
  Country: None (occurrence: None)
  Receive Date: 20120125
  Receipt Date: 20120118
  Transmission Date: 20120608
  Serious: Yes (Other)
  Sender: FDA-Public Use
  Company Number: CA-PFIZER INC-2012014378

PATIENT
  Sex: Male

DRUGS (6)
  1. ASCORBIC ACID [Concomitant]
     Dosage: UNK
  2. ALLOPURINOL [Concomitant]
     Indication: GOUT
     Dosage: 10 MG, 1X/DAY
  3. CRESTOR [Concomitant]
     Indication: BLOOD CHOLESTEROL INCREASED
     Dosage: 300 MG, 1X/DAY
  4. METFORMIN HYDROCHLORIDE [Concomitant]
     Indication: DIABETES MELLITUS
     Dosage: 1600 MG, 4 TABLETS OF 400 MG/DAY
  5. XALATAN [Suspect]
     Indication: GLAUCOMA
     Dosage: 1 DROP IN EACH EYE ONCE DAILY
     Route: 047
     Dates: start: 20090101
  6. VITAMIN B-12 [Concomitant]
     Dosage: UNK

REACTIONS (1)
  - CATARACT [None]
